FAERS Safety Report 22245402 (Version 1)
Quarter: 2023Q2

REPORT INFORMATION
  Report Type: Spontaneous
  Country: US (occurrence: None)
  Receive Date: 20230423
  Receipt Date: 20230423
  Transmission Date: 20230721
  Serious: Yes (Other)
  Sender: FDA-Public Use
  Company Number: None

PATIENT
  Age: 38 Year
  Sex: Male
  Weight: 119.25 kg

DRUGS (1)
  1. BUPRENORPHINE\NALOXONE [Suspect]
     Active Substance: BUPRENORPHINE\NALOXONE
     Dosage: OTHER QUANTITY : 56 DISSOLVE;?FREQUENCY : TWICE A DAY;?
     Route: 060
     Dates: start: 20160406

REACTIONS (1)
  - Dental caries [None]

NARRATIVE: CASE EVENT DATE: 20210416
